FAERS Safety Report 5753501-8 (Version None)
Quarter: 2008Q2

REPORT INFORMATION
  Report Type: 
  Country: None (occurrence: None)
  Receive Date: 20080530
  Receipt Date: 20080522
  Transmission Date: 20081010
  Serious: Yes (Hospitalization)
  Sender: FDA-Public Use
  Company Number: US-ROCHE-560265

PATIENT
  Age: 81 Year
  Sex: Female

DRUGS (2)
  1. BONIVA [Suspect]
     Indication: OSTEOPOROSIS
     Route: 048
     Dates: start: 20050101, end: 20071201
  2. PHENOBARBITAL TAB [Concomitant]
     Indication: EPILEPSY
     Dates: start: 19850101

REACTIONS (3)
  - NEUROPATHY PERIPHERAL [None]
  - STATUS EPILEPTICUS [None]
  - TREMOR [None]
